FAERS Safety Report 23469710 (Version 1)
Quarter: 2024Q1

REPORT INFORMATION
  Report Type: Report from Study
  Country: CA (occurrence: None)
  Receive Date: 20240202
  Receipt Date: 20240202
  Transmission Date: 20240410
  Serious: Yes (Death, Other)
  Sender: FDA-Public Use
  Company Number: 2024A025741

PATIENT
  Sex: Female

DRUGS (8)
  1. TEZSPIRE [Suspect]
     Active Substance: TEZEPELUMAB-EKKO
     Indication: Asthma
     Route: 058
     Dates: start: 20231026, end: 20231221
  2. ATROVENT [Concomitant]
     Active Substance: IPRATROPIUM BROMIDE
     Dosage: 20MCG 4 INH. QID
  3. ALVESCO [Concomitant]
     Active Substance: CICLESONIDE
     Dosage: 200MCG 2 INH BID
  4. SINGULAIR [Concomitant]
     Active Substance: MONTELUKAST SODIUM
     Dosage: 10MG DIE
  5. INCRUSE ELLIPTA [Concomitant]
     Active Substance: UMECLIDINIUM BROMIDE
     Dosage: 62.5MCG 1 INH. DIE
  6. BREO ELLIPTA [Concomitant]
     Active Substance: FLUTICASONE FUROATE\VILANTEROL TRIFENATATE
     Dosage: 200MCG 1 INH
  7. NUCALA [Concomitant]
     Active Substance: MEPOLIZUMAB
     Dosage: Q4W
  8. VENTOLIN [Concomitant]
     Active Substance: ALBUTEROL SULFATE
     Dosage: 100MCG 2 INH 5-6X

REACTIONS (1)
  - Death [Fatal]
